FAERS Safety Report 8322828-8 (Version None)
Quarter: 2012Q2

REPORT INFORMATION
  Report Type: 
  Country: None (occurrence: None)
  Receive Date: 20120430
  Receipt Date: 20120423
  Transmission Date: 20120825
  Serious: Yes (Other)
  Sender: FDA-Public Use
  Company Number: PHHY2012DE035247

PATIENT
  Age: 55 Year
  Sex: Female
  Weight: 69 kg

DRUGS (3)
  1. CLOZAPINE [Concomitant]
     Dosage: 50 MG, UNK
  2. FLUVOXAMINE MALEATE [Suspect]
     Dosage: 150 MG, UNK
  3. VALPROIC ACID [Concomitant]
     Dosage: 600 MG, UNK

REACTIONS (4)
  - PALPITATIONS [None]
  - TACHYCARDIA [None]
  - HYPOKALAEMIA [None]
  - LONG QT SYNDROME [None]
